FAERS Safety Report 16154932 (Version 1)
Quarter: 2019Q2

REPORT INFORMATION
  Report Type: Report from Study
  Country: US (occurrence: US)
  Receive Date: 20190403
  Receipt Date: 20190403
  Transmission Date: 20190711
  Serious: Yes (Hospitalization)
  Sender: FDA-Public Use
  Company Number: US-BIOGEN-2019BI00718033

PATIENT
  Sex: Female

DRUGS (1)
  1. TECFIDERA [Suspect]
     Active Substance: DIMETHYL FUMARATE
     Indication: MULTIPLE SCLEROSIS
     Route: 048
     Dates: start: 2013

REACTIONS (7)
  - Atrial fibrillation [Unknown]
  - Colitis ischaemic [Unknown]
  - Blood pressure abnormal [Unknown]
  - Hallucination, visual [Unknown]
  - Abdominal pain upper [Unknown]
  - Gait disturbance [Unknown]
  - Balance disorder [Unknown]
